FAERS Safety Report 8972017 (Version 1)
Quarter: 2012Q4

REPORT INFORMATION
  Report Type: 
  Country: FR (occurrence: FR)
  Receive Date: 20121219
  Receipt Date: 20121219
  Transmission Date: 20130627
  Serious: Yes (Other)
  Sender: FDA-Public Use
  Company Number: FR-009507513-1212FRA003868

PATIENT
  Age: 74 Year
  Sex: Female

DRUGS (6)
  1. INEGY [Suspect]
     Indication: HYPERCHOLESTEROLAEMIA
     Dosage: 1 DF, qd
     Route: 048
     Dates: end: 201209
  2. INEGY [Suspect]
     Dosage: 2 DF, biw
     Route: 048
     Dates: start: 201209, end: 201209
  3. KARDEGIC [Concomitant]
     Indication: INFARCTION
     Dosage: 75 mg, qd
     Route: 048
     Dates: start: 200904
  4. PLAVIX [Concomitant]
     Indication: INFARCTION
     Dosage: 75 mg, qd
     Route: 048
     Dates: start: 200904
  5. ZYMAD [Concomitant]
     Dosage: UNK
     Route: 048
     Dates: start: 2012
  6. FORTZAAR [Concomitant]
     Indication: INFARCTION
     Dosage: 1 DF, qd
     Route: 048
     Dates: start: 1992

REACTIONS (1)
  - Muscle contracture [Recovered/Resolved]
